FAERS Safety Report 7433552-8 (Version None)
Quarter: 2011Q2

REPORT INFORMATION
  Report Type: 
  Country: None (occurrence: None)
  Receive Date: 20110422
  Receipt Date: 20110414
  Transmission Date: 20111010
  Serious: Yes (Hospitalization)
  Sender: FDA-Public Use
  Company Number: PHHO2010JP05096

PATIENT

DRUGS (14)
  1. AMN107 [Suspect]
     Dosage: UNK
     Dates: start: 20110207, end: 20110208
  2. AMN107 [Suspect]
     Dosage: 600 MG, QD
     Dates: start: 20110209
  3. AMN107 [Suspect]
     Indication: CHRONIC MYELOID LEUKAEMIA
     Dosage: 600 MG, QD
     Route: 048
     Dates: start: 20080410, end: 20080708
  4. AMN107 [Suspect]
     Dosage: 600 MG, QD
     Dates: start: 20081029, end: 20110206
  5. MAGLAX [Concomitant]
  6. ARTZ [Concomitant]
  7. OMEPRAL [Concomitant]
  8. ALOSENN [Concomitant]
  9. KETOPROFEN [Concomitant]
  10. AMN107 [Suspect]
     Dosage: 400 MG, QD
     Dates: start: 20080730, end: 20081028
  11. GLYBURIDE [Concomitant]
  12. MEVALOTIN [Concomitant]
  13. BASEN [Concomitant]
  14. SENNOSIDE [Concomitant]

REACTIONS (9)
  - WOUND [None]
  - ANAEMIA [None]
  - AORTIC CALCIFICATION [None]
  - DIABETIC VASCULAR DISORDER [None]
  - BACK PAIN [None]
  - ARTERIOSCLEROSIS OBLITERANS [None]
  - PAIN IN EXTREMITY [None]
  - ARTERIAL THROMBOSIS LIMB [None]
  - HYPOAESTHESIA [None]
